FAERS Safety Report 24729910 (Version 6)
Quarter: 2025Q1

REPORT INFORMATION
  Report Type: Report from Study
  Country: US (occurrence: US)
  Receive Date: 20241213
  Receipt Date: 20250310
  Transmission Date: 20250408
  Serious: Yes (Hospitalization, Other)
  Sender: TAKEDA
  Company Number: US-TAKEDA-2024TUS040071

PATIENT
  Sex: Female
  Weight: 43 kg

DRUGS (14)
  1. HUMAN IMMUNOGLOBULIN G [Suspect]
     Active Substance: HUMAN IMMUNOGLOBULIN G
     Indication: Hypergammaglobulinaemia
     Dosage: 28 GRAM, Q4WEEKS
     Dates: start: 20240109
  2. HUMAN IMMUNOGLOBULIN G [Suspect]
     Active Substance: HUMAN IMMUNOGLOBULIN G
     Indication: Immune system disorder
  3. ACETAMINOPHEN [Concomitant]
     Active Substance: ACETAMINOPHEN
  4. EPINEPHRINE [Concomitant]
     Active Substance: EPINEPHRINE
  5. VITAMIN B [Concomitant]
     Active Substance: VITAMIN B
  6. SODIUM CHLORIDE [Concomitant]
     Active Substance: SODIUM CHLORIDE
  7. LOSARTAN POTASSIUM [Concomitant]
     Active Substance: LOSARTAN POTASSIUM
  8. ESTRADIOL [Concomitant]
     Active Substance: ESTRADIOL
  9. LIDOCAINE [Concomitant]
     Active Substance: LIDOCAINE
  10. CALCIUM [Concomitant]
     Active Substance: CALCIUM
  11. DUPIXENT [Concomitant]
     Active Substance: DUPILUMAB
  12. DIPHENHYDRAMINE HYDROCHLORIDE [Concomitant]
     Active Substance: DIPHENHYDRAMINE HYDROCHLORIDE
  13. MEDROXYPROGESTERONE ACETATE [Concomitant]
     Active Substance: MEDROXYPROGESTERONE ACETATE
  14. AMLODIPINE BESYLATE [Concomitant]
     Active Substance: AMLODIPINE BESYLATE

REACTIONS (9)
  - Diverticulitis [Unknown]
  - Infection [Unknown]
  - Anaemia [Unknown]
  - Vein rupture [Unknown]
  - Product distribution issue [Unknown]
  - Hot flush [Unknown]
  - Infusion site extravasation [Unknown]
  - Infusion site erythema [Unknown]
  - Infusion site swelling [Unknown]
